FAERS Safety Report 10364224 (Version 2)
Quarter: 2014Q3

REPORT INFORMATION
  Report Type: Spontaneous
  Country: US (occurrence: US)
  Receive Date: 20140806
  Receipt Date: 20140806
  Transmission Date: 20150326
  Serious: Yes (Death, Hospitalization)
  Sender: FDA-Public Use
  Company Number: US-BIOGENIDEC2013BI123992

PATIENT
  Age: 61 Year
  Sex: Female

DRUGS (2)
  1. TYSABRI [Suspect]
     Active Substance: NATALIZUMAB
     Indication: MULTIPLE SCLEROSIS
     Route: 042
     Dates: start: 20070601, end: 20110402
  2. TYSABRI [Suspect]
     Active Substance: NATALIZUMAB
     Indication: MULTIPLE SCLEROSIS
     Route: 042
     Dates: start: 20110902, end: 20131203

REACTIONS (8)
  - Death [Fatal]
  - Thrombocytopenia [Not Recovered/Not Resolved]
  - Depressed level of consciousness [Unknown]
  - Hypotension [Unknown]
  - Rash [Recovered/Resolved]
  - Mental status changes [Not Recovered/Not Resolved]
  - Respiratory failure [Unknown]
  - Muscle twitching [Unknown]

NARRATIVE: CASE EVENT DATE: 201312
